FAERS Safety Report 22062413 (Version 1)
Quarter: 2023Q1

REPORT INFORMATION
  Report Type: Spontaneous
  Country: US (occurrence: US)
  Receive Date: 20230305
  Receipt Date: 20230305
  Transmission Date: 20230418
  Serious: No
  Sender: FDA-Public Use
  Company Number: US-JNJFOC-20230259961

PATIENT
  Age: 79 Year
  Sex: Female

DRUGS (1)
  1. IMODIUM MULTI-SYMPTOM RELIEF [Suspect]
     Active Substance: DIMETHICONE\LOPERAMIDE HYDROCHLORIDE
     Indication: Diarrhoea
     Dosage: FREQUENCY: 2 CAPLET ON THE FIRST LOOSE STOOL AND 1 CAPLET ON THE SECOND LOOSE STOOL SAME DAY
     Route: 048
     Dates: start: 20230217

REACTIONS (1)
  - Drug ineffective [Unknown]

NARRATIVE: CASE EVENT DATE: 20230201
